FAERS Safety Report 5779137-0 (Version None)
Quarter: 2008Q2

REPORT INFORMATION
  Report Type: 
  Country: None (occurrence: None)
  Receive Date: 20080619
  Receipt Date: 20080610
  Transmission Date: 20081010
  Serious: Yes (Hospitalization)
  Sender: FDA-Public Use
  Company Number: FR-SANOFI-SYNTHELABO-A02200801767

PATIENT
  Sex: Female
  Weight: 3.19 kg

DRUGS (4)
  1. CLONAZEPAM [Concomitant]
     Route: 064
     Dates: end: 20070701
  2. LEXOMIL [Suspect]
     Route: 064
     Dates: start: 20070907, end: 20071221
  3. STILNOX [Suspect]
     Route: 064
     Dates: start: 20070907, end: 20071221
  4. EUPHYTOSE [Suspect]
     Dosage: UNK
     Route: 064

REACTIONS (2)
  - DRUG EXPOSURE DURING PREGNANCY [None]
  - POOR SUCKING REFLEX [None]
